FAERS Safety Report 25140944 (Version 1)
Quarter: 2025Q1

REPORT INFORMATION
  Report Type: Spontaneous
  Country: US (occurrence: None)
  Receive Date: 20250330
  Receipt Date: 20250330
  Transmission Date: 20250409
  Serious: Yes (Other)
  Sender: FDA-CTU
  Company Number: None

PATIENT
  Age: 51 Year
  Sex: Female
  Weight: 48.15 kg

DRUGS (3)
  1. LEVOFLOXACIN [Suspect]
     Active Substance: LEVOFLOXACIN
     Indication: Urinary tract infection
     Dosage: FREQUENCY : DAILY;?
     Route: 048
     Dates: start: 20250325, end: 20250327
  2. VALIUM [Suspect]
     Active Substance: DIAZEPAM
  3. LEVOTHYROXINE [Concomitant]
     Active Substance: LEVOTHYROXINE

REACTIONS (14)
  - Bladder pain [None]
  - Renal pain [None]
  - Vomiting [None]
  - Thinking abnormal [None]
  - Feeling abnormal [None]
  - Anxiety [None]
  - Agitation [None]
  - Gait disturbance [None]
  - Disturbance in attention [None]
  - Visual impairment [None]
  - Vision blurred [None]
  - Arthralgia [None]
  - Fatigue [None]
  - Asthenia [None]

NARRATIVE: CASE EVENT DATE: 20250325
